FAERS Safety Report 12976809 (Version 2)
Quarter: 2016Q4

REPORT INFORMATION
  Report Type: Spontaneous
  Country: TN (occurrence: TN)
  Receive Date: 20161128
  Receipt Date: 20161208
  Transmission Date: 20170207
  Serious: Yes (Other)
  Sender: FDA-Public Use
  Company Number: PHHY2016TN160921

PATIENT
  Age: 62 Year
  Sex: Male

DRUGS (2)
  1. TEGRETOL [Suspect]
     Active Substance: CARBAMAZEPINE
     Indication: PARTIAL SEIZURES
     Dosage: 1 DF, BID
     Route: 048
     Dates: start: 201501, end: 201610
  2. BRILIQUE [Concomitant]
     Active Substance: TICAGRELOR
     Indication: CORONARY ARTERY DISEASE
     Dosage: 1 DF, BID
     Route: 065
     Dates: start: 201609

REACTIONS (5)
  - Dizziness [Unknown]
  - Nausea [Unknown]
  - Myocardial infarction [Recovered/Resolved]
  - Angina pectoris [Unknown]
  - Vomiting [Unknown]

NARRATIVE: CASE EVENT DATE: 201610
